FAERS Safety Report 18197689 (Version 1)
Quarter: 2020Q3

REPORT INFORMATION
  Report Type: Spontaneous
  Country: US (occurrence: US)
  Receive Date: 20200826
  Receipt Date: 20200826
  Transmission Date: 20201103
  Serious: No
  Sender: FDA-Public Use
  Company Number: US-PFIZER INC-2020328462

PATIENT
  Age: 90 Year
  Sex: Male
  Weight: 74.84 kg

DRUGS (3)
  1. TOVIAZ [Suspect]
     Active Substance: FESOTERODINE FUMARATE
     Dosage: 8 MG
  2. FLOMAX [Concomitant]
     Active Substance: TAMSULOSIN HYDROCHLORIDE
     Dosage: UNK
  3. FESOTERODINE [Suspect]
     Active Substance: FESOTERODINE

REACTIONS (3)
  - Body height decreased [Unknown]
  - Back pain [Unknown]
  - Blood urea increased [Unknown]
